FAERS Safety Report 9365639 (Version 1)
Quarter: 2013Q2

REPORT INFORMATION
  Report Type: Spontaneous
  Country: US (occurrence: None)
  Receive Date: 20130624
  Receipt Date: 20130624
  Transmission Date: 20140414
  Serious: Yes (Hospitalization)
  Sender: FDA-Public Use
  Company Number: None

PATIENT
  Sex: Male

DRUGS (8)
  1. ZYTIGA [Suspect]
     Route: 048
  2. PRESNISONE [Concomitant]
  3. PRAVASTATIN [Concomitant]
  4. POTASSIUM [Concomitant]
  5. METFORMIN [Concomitant]
  6. FUROSEMID [Concomitant]
  7. VITAMIN D SUPPLEMENT [Concomitant]
  8. LEVOTHYROXIN [Concomitant]

REACTIONS (2)
  - Haemoglobin decreased [None]
  - Condition aggravated [None]
